FAERS Safety Report 5294644-5 (Version None)
Quarter: 2007Q2

REPORT INFORMATION
  Report Type: 
  Country: None (occurrence: None)
  Receive Date: 20070412
  Receipt Date: 20070403
  Transmission Date: 20071010
  Serious: Yes (Other)
  Sender: FDA-Public Use
  Company Number: FR-AVENTIS-200711196FR

PATIENT
  Age: 50 Year
  Sex: Female

DRUGS (3)
  1. ARAVA [Suspect]
     Route: 048
  2. SINGULAIR [Concomitant]
     Indication: ASTHMA
     Route: 048
  3. SERETIDE [Concomitant]
     Indication: ASTHMA
     Route: 055

REACTIONS (1)
  - CUTANEOUS LUPUS ERYTHEMATOSUS [None]
